FAERS Safety Report 23182249 (Version 2)
Quarter: 2023Q4

REPORT INFORMATION
  Report Type: Spontaneous
  Country: US (occurrence: US)
  Receive Date: 20231114
  Receipt Date: 20231204
  Transmission Date: 20240110
  Serious: Yes (Death)
  Sender: FDA-Public Use
  Company Number: US-ALKERMES INC.-ALK-2023-004363

PATIENT
  Age: 43 Year
  Sex: Male

DRUGS (6)
  1. VIVITROL [Suspect]
     Active Substance: NALTREXONE
     Indication: Drug dependence
     Dosage: 380 MILLIGRAM, QMO
     Route: 030
     Dates: start: 20231003, end: 20231003
  2. BUSPIRONE [Concomitant]
     Active Substance: BUSPIRONE HYDROCHLORIDE
     Indication: Anxiety
     Dosage: 15 MILLIGRAM, BID
     Dates: start: 20230915
  3. PANTOPRAZOLE [Concomitant]
     Active Substance: PANTOPRAZOLE
     Indication: Retching
     Dosage: 40 MILLIGRAM, QD
     Route: 048
     Dates: start: 20230915
  4. PRAZOSIN [Concomitant]
     Active Substance: PRAZOSIN
     Indication: Parasomnia
     Dosage: 1 MILLIGRAM, QHS
     Route: 048
     Dates: start: 20230921
  5. TRAZODONE [Concomitant]
     Active Substance: TRAZODONE HYDROCHLORIDE
     Indication: Insomnia
     Dosage: 100 MILLIGRAM, QHS
     Route: 048
     Dates: start: 20230920
  6. HYDROCHLOROTHIAZIDE\LISINOPRIL [Concomitant]
     Active Substance: HYDROCHLOROTHIAZIDE\LISINOPRIL
     Indication: Hypertension
     Dosage: 20/25  MILLIGRAM, QD
     Route: 048
     Dates: start: 20231020

REACTIONS (2)
  - Peritonitis [Fatal]
  - Overdose [Fatal]

NARRATIVE: CASE EVENT DATE: 20231001
